FAERS Safety Report 9700816 (Version 2)
Quarter: 2014Q1

REPORT INFORMATION
  Report Type: Report from Study
  Country: CA (occurrence: CA)
  Receive Date: 20131121
  Receipt Date: 20140106
  Transmission Date: 20141002
  Serious: Yes (Death, Hospitalization)
  Sender: FDA-Public Use
  Company Number: PHHY2013CA133042

PATIENT
  Sex: Female

DRUGS (2)
  1. CLOZARIL [Suspect]
     Indication: SCHIZOPHRENIA
     Dosage: UNK
     Dates: start: 19930929
  2. CLOZARIL [Suspect]
     Dosage: 100 MG, HS
     Route: 048
     Dates: start: 19970903, end: 20131113

REACTIONS (1)
  - Lung neoplasm malignant [Fatal]
